FAERS Safety Report 20731414 (Version 1)
Quarter: 2022Q2

REPORT INFORMATION
  Report Type: Report from Study
  Country: CA (occurrence: CA)
  Receive Date: 20220420
  Receipt Date: 20220420
  Transmission Date: 20220721
  Serious: Yes (Other)
  Sender: FDA-Public Use
  Company Number: CA-ABBVIE-22K-028-4262120-00

PATIENT
  Sex: Female

DRUGS (3)
  1. RINVOQ [Suspect]
     Active Substance: UPADACITINIB
     Indication: Psoriatic arthropathy
     Route: 048
     Dates: start: 20210907, end: 202204
  2. PANTOPRAZOLE MAGNESIUM [Concomitant]
     Active Substance: PANTOPRAZOLE MAGNESIUM
     Indication: Product used for unknown indication
  3. ROSACEA [Concomitant]
     Active Substance: SULFUR
     Indication: Product used for unknown indication

REACTIONS (21)
  - Dental operation [Unknown]
  - Pain in extremity [Recovering/Resolving]
  - Pain [Unknown]
  - Erythema [Recovered/Resolved]
  - Feeling hot [Unknown]
  - Limb discomfort [Recovering/Resolving]
  - Rosacea [Not Recovered/Not Resolved]
  - Fatigue [Recovering/Resolving]
  - Thrombosis [Recovered/Resolved]
  - Burning sensation [Recovered/Resolved]
  - Pain in extremity [Recovered/Resolved]
  - Pain in extremity [Not Recovered/Not Resolved]
  - Memory impairment [Unknown]
  - Decreased appetite [Unknown]
  - Hypersomnia [Unknown]
  - Stress [Unknown]
  - Abdominal pain [Unknown]
  - Diarrhoea [Recovered/Resolved]
  - Candida infection [Unknown]
  - Pyrexia [Not Recovered/Not Resolved]
  - Pain in extremity [Not Recovered/Not Resolved]

NARRATIVE: CASE EVENT DATE: 20220101
